FAERS Safety Report 18673456 (Version 1)
Quarter: 2020Q4

REPORT INFORMATION
  Report Type: Spontaneous
  Country: US (occurrence: US)
  Receive Date: 20201229
  Receipt Date: 20201229
  Transmission Date: 20210114
  Serious: No
  Sender: FDA-Public Use
  Company Number: US-AUROBINDO-AUR-APL-2020-012644

PATIENT
  Age: 61 Year
  Sex: Female
  Weight: 88.44 kg

DRUGS (1)
  1. AMOXICILLIN TABLETS USP 875 MG [Suspect]
     Active Substance: AMOXICILLIN
     Indication: TOOTH ABSCESS
     Dosage: UNK
     Route: 065
     Dates: end: 20200130

REACTIONS (6)
  - Eye swelling [Recovered/Resolved]
  - Pruritus [Recovered/Resolved]
  - Mouth swelling [Recovered/Resolved]
  - Oral pruritus [Recovered/Resolved]
  - Rhinorrhoea [Recovered/Resolved]
  - Rash [Recovered/Resolved]

NARRATIVE: CASE EVENT DATE: 20200127
